FAERS Safety Report 10260285 (Version 1)
Quarter: 2014Q2

REPORT INFORMATION
  Report Type: Spontaneous
  Country: US (occurrence: US)
  Receive Date: 20140625
  Receipt Date: 20140625
  Transmission Date: 20141212
  Serious: No
  Sender: FDA-Public Use
  Company Number: US-SA-2014SA052637

PATIENT
  Age: 51 Year
  Sex: Female

DRUGS (13)
  1. AUBAGIO [Suspect]
     Indication: PRODUCT USED FOR UNKNOWN INDICATION
     Route: 065
  2. AMPYRA [Suspect]
     Indication: PRODUCT USED FOR UNKNOWN INDICATION
     Route: 065
  3. TIZANIDINE HYDROCHLORIDE [Concomitant]
  4. LUNESTA [Concomitant]
  5. CITALOPRAM HYDROCHLORIDE [Concomitant]
  6. OXYBUTYNIN HYDROCHLORIDE [Concomitant]
  7. METHENAMINE MANDELATE [Concomitant]
  8. FLUDROCORTISONE ACETATE [Concomitant]
  9. FIORINAL [Concomitant]
  10. VITAMIN D [Concomitant]
  11. VITAMIN B12 [Concomitant]
  12. FISH OIL [Concomitant]
  13. CRANBERRY EXTRACT [Concomitant]

REACTIONS (2)
  - Abdominal pain upper [Recovering/Resolving]
  - Alopecia [Recovering/Resolving]
